FAERS Safety Report 25331440 (Version 3)
Quarter: 2025Q2

REPORT INFORMATION
  Report Type: Spontaneous
  Country: US (occurrence: US)
  Receive Date: 20250519
  Receipt Date: 20250521
  Transmission Date: 20250716
  Serious: Yes (Other)
  Sender: ADVANZ PHARMA
  Company Number: US-MLMSERVICE-20250428-PI493789-00095-1

PATIENT

DRUGS (1)
  1. HYDROXYCHLOROQUINE [Suspect]
     Active Substance: HYDROXYCHLOROQUINE
     Indication: Chronic cutaneous lupus erythematosus
     Dates: start: 1998

REACTIONS (7)
  - Chronic cutaneous lupus erythematosus [Recovering/Resolving]
  - Lichen planus [Recovering/Resolving]
  - Skin lesion [Recovering/Resolving]
  - Acanthosis [Recovering/Resolving]
  - Excessive granulation tissue [Recovering/Resolving]
  - Hyperkeratosis [Recovering/Resolving]
  - Lymphocytic infiltration [Recovering/Resolving]

NARRATIVE: CASE EVENT DATE: 20060101
